FAERS Safety Report 15654361 (Version 1)
Quarter: 2018Q4

REPORT INFORMATION
  Report Type: Other
  Country: BE (occurrence: BE)
  Receive Date: 20181126
  Receipt Date: 20181126
  Transmission Date: 20190205
  Serious: Yes (Other)
  Sender: FDA-Public Use
  Company Number: BE-ORCHID HEALTHCARE-2059252

PATIENT
  Age: 55 Year
  Sex: Male

DRUGS (4)
  1. PRAMIPEXOLE. [Suspect]
     Active Substance: PRAMIPEXOLE
     Route: 065
  2. LEVODOPA [Suspect]
     Active Substance: LEVODOPA
     Route: 065
  3. COCAINE [Concomitant]
     Active Substance: COCAINE
     Route: 065
  4. RASAGILINE MESYLATE. [Suspect]
     Active Substance: RASAGILINE MESYLATE
     Indication: PARKINSON^S DISEASE
     Route: 065

REACTIONS (2)
  - Impulse-control disorder [Not Recovered/Not Resolved]
  - Paraphilia [Not Recovered/Not Resolved]
